FAERS Safety Report 7009380-4 (Version None)
Quarter: 2010Q3

REPORT INFORMATION
  Report Type: 
  Country: None (occurrence: None)
  Receive Date: 20100923
  Receipt Date: 20100915
  Transmission Date: 20110219
  Serious: Yes (Other)
  Sender: FDA-Public Use
  Company Number: US-ELI_LILLY_AND_COMPANY-US201009004176

PATIENT
  Sex: Male
  Weight: 86.168 kg

DRUGS (11)
  1. BYETTA [Suspect]
     Indication: TYPE 2 DIABETES MELLITUS
     Dosage: 5 UG, 2/D
     Route: 058
     Dates: start: 20050101
  2. BYETTA [Suspect]
     Dosage: 10 UG, 2/D
     Route: 058
  3. PRAZOSIN HCL [Concomitant]
     Indication: NIGHTMARE
     Dosage: UNK, EACH EVENING
     Route: 048
  4. ARIPIPRAZOLE [Concomitant]
     Indication: DEPRESSION
     Dosage: UNK, EACH EVENING
     Route: 048
  5. SIMVASTATIN [Concomitant]
     Indication: BLOOD CHOLESTEROL INCREASED
  6. LEVOTHYROXINE SODIUM [Concomitant]
     Dosage: 0.125 UG, DAILY (1/D)
     Route: 048
  7. CLONAZEPAM [Concomitant]
  8. VENLAFAXINE HCL [Concomitant]
     Dosage: UNK, DAILY (1/D)
     Route: 048
  9. PLAVIX [Concomitant]
     Indication: ANTIPLATELET THERAPY
     Dosage: 75 MG, UNK
  10. LAMOTRIGINE [Concomitant]
     Dates: start: 20100801
  11. DEPAKOTE [Concomitant]

REACTIONS (7)
  - BLOOD GLUCOSE INCREASED [None]
  - CARDIAC DISORDER [None]
  - DEPRESSION [None]
  - DRUG INTERACTION [None]
  - MOOD ALTERED [None]
  - NASAL POLYPS [None]
  - POST-TRAUMATIC STRESS DISORDER [None]
